FAERS Safety Report 15670888 (Version 1)
Quarter: 2018Q4

REPORT INFORMATION
  Report Type: Spontaneous
  Country: DE (occurrence: DE)
  Receive Date: 20181129
  Receipt Date: 20181129
  Transmission Date: 20190205
  Serious: No
  Sender: FDA-Public Use
  Company Number: DE-NODEN PHARMA DAC-NOD-2018-000026

PATIENT
  Age: 69 Year
  Sex: Female

DRUGS (2)
  1. ALISKIREN HEMIFUMARATE [Suspect]
     Active Substance: ALISKIREN HEMIFUMARATE
     Indication: PRODUCT USED FOR UNKNOWN INDICATION
     Dosage: 1 MOL/ML, UNK (1 DOSAGE FORM=1 TABLET)
     Route: 048
  2. ASTAXANTHIN [Concomitant]
     Indication: PRODUCT USED FOR UNKNOWN INDICATION
     Dosage: 1 MOL/ML, BID (1 DOSAGE FORM = 1 CAPSULE)
     Route: 048

REACTIONS (7)
  - Joint noise [Unknown]
  - Dry throat [Unknown]
  - Arthralgia [Unknown]
  - Oedema peripheral [Unknown]
  - Lip blister [Unknown]
  - Lip exfoliation [Unknown]
  - Lip swelling [Unknown]
